FAERS Safety Report 8935682 (Version 1)
Quarter: 2012Q4

REPORT INFORMATION
  Report Type: 
  Country: IN (occurrence: IN)
  Receive Date: 20121130
  Receipt Date: 20121130
  Transmission Date: 20130627
  Serious: Yes (Other)
  Sender: FDA-Public Use
  Company Number: PHHY2012IN104053

PATIENT
  Age: 71 Year
  Sex: Female

DRUGS (1)
  1. ACLASTA [Suspect]
     Indication: OSTEOPOROSIS
     Dosage: 5 mg / 100 ml
     Route: 042
     Dates: start: 20120723

REACTIONS (4)
  - Hip fracture [Unknown]
  - Accident [Unknown]
  - Nasopharyngitis [Unknown]
  - Pyrexia [Unknown]
